FAERS Safety Report 7441053-6 (Version None)
Quarter: 2011Q2

REPORT INFORMATION
  Report Type: 
  Country: None (occurrence: None)
  Receive Date: 20110427
  Receipt Date: 20101103
  Transmission Date: 20111010
  Serious: Yes (Other)
  Sender: FDA-Public Use
  Company Number: PHBS2007US21830

PATIENT
  Sex: Male
  Weight: 71.111 kg

DRUGS (14)
  1. EXJADE [Suspect]
     Indication: IRON OVERLOAD
     Dosage: UNK
     Dates: start: 20040901
  2. MULTI-VITAMINS [Concomitant]
     Dosage: 1 DF, DAILY
     Route: 048
  3. METFORMIN [Concomitant]
     Dosage: 1000 MG, BID
     Route: 048
  4. PROTONIX [Concomitant]
     Dosage: 40 MG, DAILY
     Route: 048
  5. GEMFIBROZIL [Concomitant]
     Dosage: 600 MG, BID
     Route: 048
  6. GLIMEPIRIDE [Concomitant]
     Dosage: 2 MG, BID
     Route: 048
  7. PREDNISONE [Concomitant]
  8. SITAGLIPTIN PHOSPHATE [Concomitant]
  9. EXJADE [Suspect]
     Dosage: UNK
     Dates: start: 20070801
  10. EXJADE [Suspect]
     Dosage: 500 MG, TID
     Route: 048
     Dates: start: 20070901, end: 20071015
  11. AMARYL [Concomitant]
     Dosage: 2 MG, QD
  12. LISINOPRIL [Concomitant]
     Dosage: 10 MG, DAILY
     Route: 048
  13. AMARYL [Concomitant]
     Dosage: 4 MG, QD
  14. CALCIUM CARBONATE [Concomitant]
     Dosage: 500 MG, TID
     Route: 048

REACTIONS (16)
  - FLATULENCE [None]
  - ERUCTATION [None]
  - BLOOD PRESSURE INCREASED [None]
  - GASTROOESOPHAGEAL REFLUX DISEASE [None]
  - ABDOMINAL PAIN [None]
  - POLLAKIURIA [None]
  - CHEST PAIN [None]
  - ABDOMINAL DISTENSION [None]
  - HEART RATE INCREASED [None]
  - OESOPHAGEAL SPASM [None]
  - CHEST DISCOMFORT [None]
  - HYPOGLYCAEMIA [None]
  - NAUSEA [None]
  - DECREASED APPETITE [None]
  - PAIN [None]
  - FEELING ABNORMAL [None]
